FAERS Safety Report 10602630 (Version 1)
Quarter: 2014Q4

REPORT INFORMATION
  Report Type: Spontaneous
  Country: US (occurrence: US)
  Receive Date: 20141124
  Receipt Date: 20141124
  Transmission Date: 20150529
  Serious: No
  Sender: FDA-Public Use
  Company Number: US-NOVEN-14US010132

PATIENT
  Sex: Female

DRUGS (1)
  1. MINIVELLE [Suspect]
     Active Substance: ESTRADIOL
     Indication: PRODUCT USED FOR UNKNOWN INDICATION
     Dosage: 0.0375MG/DAY; UNK
     Route: 062

REACTIONS (4)
  - Abdominal distension [Unknown]
  - Tremor [Unknown]
  - Breast tenderness [Unknown]
  - Irritability [Unknown]
